FAERS Safety Report 9257699 (Version 1)
Quarter: 2013Q1

REPORT INFORMATION
  Report Type: Spontaneous
  Country: US (occurrence: None)
  Receive Date: 20121212
  Receipt Date: 20121212
  Transmission Date: 20140127
  Serious: No
  Sender: FDA-Public Use
  Company Number: 1207USA011676

PATIENT
  Age: 54 Year
  Sex: Female

DRUGS (9)
  1. PEGINTRON [Suspect]
     Indication: HEPATITIS C
     Route: 058
     Dates: start: 20120418
  2. VICTRELIS [Suspect]
     Indication: HEPATITIS C
     Dates: start: 201204
  3. RIBASPHERE [Concomitant]
  4. PREMARIN [Concomitant]
  5. CENTRUM [Concomitant]
  6. BUSPIRONE HYDROCHLORIDE [Concomitant]
  7. ESTROGENS, CONJUGATED\METHYLTESTOSTERONE [Concomitant]
  8. TYLENOL [Concomitant]
  9. PREPARATION H [Concomitant]

REACTIONS (10)
  - Alopecia [None]
  - Insomnia [None]
  - Dry skin [None]
  - Pruritus [None]
  - Fatigue [None]
  - Rash [None]
  - Lip dry [None]
  - Chapped lips [None]
  - Dysgeusia [None]
  - Lip haemorrhage [None]
